FAERS Safety Report 23961952 (Version 1)
Quarter: 2024Q2

REPORT INFORMATION
  Report Type: Spontaneous
  Country: US (occurrence: US)
  Receive Date: 20240611
  Receipt Date: 20240611
  Transmission Date: 20240715
  Serious: No
  Sender: FDA-Public Use
  Company Number: US-RIGEL PHARMACEUTICALS, INC.- 2023FOS000438

PATIENT
  Sex: Female
  Weight: 73.469 kg

DRUGS (9)
  1. TAVALISSE [Suspect]
     Active Substance: FOSTAMATINIB
     Indication: Immune thrombocytopenia
     Dosage: 100MG BID EVERY OTHER DAY, ALTERNATING WITH 150MG QD EVERY OTHER DAY
     Route: 048
     Dates: start: 20230307
  2. TAVALISSE [Suspect]
     Active Substance: FOSTAMATINIB
     Dosage: 150 MILLIGRAM, QD
     Route: 048
     Dates: start: 20221220
  3. CHLOROPHYLL [Concomitant]
     Indication: Product used for unknown indication
     Dosage: UNK, QD
     Route: 048
  4. FLAX OIL [Concomitant]
     Indication: Product used for unknown indication
     Dosage: UNK, QD
  5. FISH OIL [Concomitant]
     Active Substance: FISH OIL
     Indication: Product used for unknown indication
     Dosage: UNK, QD
  6. BORAGE OIL [Concomitant]
     Active Substance: BORAGE OIL
     Indication: Product used for unknown indication
     Dosage: UNK, QD
  7. VITAMIN D3 [Concomitant]
     Active Substance: CHOLECALCIFEROL
     Indication: Product used for unknown indication
     Dosage: UNK, QD
  8. VITAMINS [Concomitant]
     Active Substance: VITAMINS
     Indication: Product used for unknown indication
     Dosage: UNK, QD
  9. TRIPLE OMEGA 3 6 9 [Concomitant]
     Indication: Product used for unknown indication
     Dosage: UNK, QD

REACTIONS (2)
  - Gastroenteritis viral [Recovered/Resolved]
  - Diarrhoea [Unknown]

NARRATIVE: CASE EVENT DATE: 20230101
